FAERS Safety Report 15591025 (Version 1)
Quarter: 2018Q4

REPORT INFORMATION
  Report Type: Spontaneous
  Country: IT (occurrence: IT)
  Receive Date: 20181106
  Receipt Date: 20181106
  Transmission Date: 20190205
  Serious: Yes (Other)
  Sender: FDA-Public Use
  Company Number: IT-PFIZER INC-2018445846

PATIENT
  Age: 69 Year
  Sex: Female

DRUGS (13)
  1. IBRANCE [Suspect]
     Active Substance: PALBOCICLIB
     Indication: BREAST CANCER
     Dosage: 125 MG, 1X/DAY
     Route: 048
     Dates: start: 20170717, end: 20171025
  2. MOVICOL [Concomitant]
     Active Substance: POLYETHYLENE GLYCOL 3350\POTASSIUM CHLORIDE\SODIUM BICARBONATE\SODIUM CHLORIDE
  3. DIBASE [Concomitant]
     Active Substance: CHOLECALCIFEROL
  4. BISOPROLOL FUMARATE. [Concomitant]
     Active Substance: BISOPROLOL FUMARATE
  5. PANTORC [Concomitant]
     Active Substance: PANTOPRAZOLE SODIUM
  6. SIVASTIN [Concomitant]
     Active Substance: SIMVASTATIN
  7. PALEXIA [Concomitant]
     Active Substance: TAPENTADOL HYDROCHLORIDE
  8. CARDIOASPIRIN [Concomitant]
     Active Substance: ASPIRIN
  9. CLEXANE [Concomitant]
     Active Substance: ENOXAPARIN SODIUM
  10. XGEVA [Concomitant]
     Active Substance: DENOSUMAB
     Dates: start: 20170703, end: 20171025
  11. FASLODEX [Concomitant]
     Active Substance: FULVESTRANT
     Dates: start: 20170703, end: 20171025
  12. NEURONTIN [Concomitant]
     Active Substance: GABAPENTIN
  13. MINIAS [Concomitant]
     Active Substance: LORMETAZEPAM

REACTIONS (4)
  - Neutropenia [Unknown]
  - Thrombocytopenia [Unknown]
  - Anaemia [Unknown]
  - Hypertransaminasaemia [Unknown]

NARRATIVE: CASE EVENT DATE: 20170731
